FAERS Safety Report 4370359-2 (Version None)
Quarter: 2004Q2

REPORT INFORMATION
  Report Type: 
  Country: None (occurrence: None)
  Receive Date: 20040603
  Receipt Date: 20040217
  Transmission Date: 20050107
  Serious: No
  Sender: FDA-Public Use
  Company Number: US-BRISTOL-MYERS SQUIBB COMPANY-12509295

PATIENT
  Sex: Male

DRUGS (4)
  1. ABILIFY [Suspect]
     Indication: SCHIZOAFFECTIVE DISORDER
     Route: 048
  2. ABILIFY [Interacting]
     Indication: DEPRESSION
     Route: 048
  3. XANAX [Concomitant]
  4. NEURONTIN [Concomitant]

REACTIONS (1)
  - DYSKINESIA [None]
